FAERS Safety Report 9304026 (Version 1)
Quarter: 2013Q2

REPORT INFORMATION
  Report Type: Spontaneous
  Country: JP (occurrence: JP)
  Receive Date: 20130522
  Receipt Date: 20130522
  Transmission Date: 20140414
  Serious: Yes (Hospitalization)
  Sender: FDA-Public Use
  Company Number: PHHY2013JP050114

PATIENT
  Age: 31 Year
  Sex: Male

DRUGS (3)
  1. EPLERENONE [Suspect]
     Indication: ESSENTIAL HYPERTENSION
     Dosage: 50 MG
  2. LOSARTAN+HYDROCHLOROTHIAZIDE [Interacting]
     Indication: ESSENTIAL HYPERTENSION
  3. DOXAZOSIN MESILATE [Concomitant]
     Indication: ESSENTIAL HYPERTENSION
     Dosage: 1 MG

REACTIONS (5)
  - Coma [Recovered/Resolved]
  - Altered state of consciousness [Recovered/Resolved]
  - Convulsion [Recovered/Resolved]
  - Hyponatraemia [Recovered/Resolved]
  - Drug interaction [Recovered/Resolved]
